FAERS Safety Report 5412443-8 (Version None)
Quarter: 2007Q3

REPORT INFORMATION
  Report Type: 
  Country: None (occurrence: None)
  Receive Date: 20070809
  Receipt Date: 20070803
  Transmission Date: 20080115
  Serious: Yes (Death, Hospitalization)
  Sender: FDA-Public Use
  Company Number: 163-21880-07071073

PATIENT
  Age: 66 Year
  Sex: Female

DRUGS (9)
  1. REVLIMID [Suspect]
     Indication: MYELODYSPLASTIC SYNDROME
     Dosage: 10 MG, 1 IN 1 D, ORAL; 10 MG, 1 IN 1 D, ORAL
     Route: 048
     Dates: start: 20070413, end: 20070524
  2. REVLIMID [Suspect]
     Indication: MYELODYSPLASTIC SYNDROME
     Dosage: 10 MG, 1 IN 1 D, ORAL; 10 MG, 1 IN 1 D, ORAL
     Route: 048
     Dates: start: 20070614
  3. BACTRIM [Concomitant]
  4. NEXIUM [Concomitant]
  5. POSACONAZOLE [Concomitant]
  6. DESFERAL (DEFEROXAMINE MESILATE) (INJECTION) [Concomitant]
  7. PROZAC [Concomitant]
  8. PREDNISONE TAB [Concomitant]
  9. TRANSFUSIONS (BLOOD AND RELATED PRODUCTS) [Concomitant]

REACTIONS (4)
  - FATIGUE [None]
  - IRON OVERLOAD [None]
  - NIGHT SWEATS [None]
  - PYREXIA [None]
